FAERS Safety Report 4338738-7 (Version None)
Quarter: 2004Q2

REPORT INFORMATION
  Report Type: 
  Country: None (occurrence: None)
  Receive Date: 20040409
  Receipt Date: 20040402
  Transmission Date: 20050107
  Serious: Yes (Death)
  Sender: FDA-Public Use
  Company Number: AU-JNJFOC-20040400849

PATIENT

DRUGS (1)
  1. RISPERDAL [Suspect]
     Indication: DEMENTIA
     Dosage: 1 MG,  IN 1 DAY, ORAL
     Route: 048

REACTIONS (1)
  - EMOTIONAL DISORDER [None]
